FAERS Safety Report 6122384-9 (Version None)
Quarter: 2009Q1

REPORT INFORMATION
  Report Type: 
  Country: None (occurrence: None)
  Receive Date: 20090318
  Receipt Date: 20090130
  Transmission Date: 20090719
  Serious: No
  Sender: FDA-Public Use
  Company Number: US-ASTRAZENECA-2009UW02891

PATIENT
  Sex: Female
  Weight: 92.1 kg

DRUGS (6)
  1. SYMBICORT [Suspect]
     Indication: ASTHMA
     Dosage: 160/4.5 MCG BID
     Route: 055
  2. NEXIUM [Concomitant]
  3. PREMARIN [Concomitant]
  4. DIOVAN HCT [Concomitant]
  5. ASPIRIN [Concomitant]
  6. PROVIGIL [Concomitant]

REACTIONS (1)
  - INCREASED UPPER AIRWAY SECRETION [None]
